FAERS Safety Report 19228123 (Version 1)
Quarter: 2021Q2

REPORT INFORMATION
  Report Type: Spontaneous
  Country: US (occurrence: US)
  Receive Date: 20210506
  Receipt Date: 20210506
  Transmission Date: 20210717
  Serious: No
  Sender: FDA-Public Use
  Company Number: US-ROCHE-2729666

PATIENT
  Sex: Male

DRUGS (1)
  1. ESBRIET [Suspect]
     Active Substance: PIRFENIDONE
     Indication: IDIOPATHIC PULMONARY FIBROSIS
     Route: 048
     Dates: start: 20201029

REACTIONS (7)
  - Pruritus [Unknown]
  - Diarrhoea [Unknown]
  - Lip dry [Unknown]
  - Dry mouth [Unknown]
  - Lip pain [Unknown]
  - Lip swelling [Unknown]
  - Lip pruritus [Unknown]
